FAERS Safety Report 8077632-5 (Version None)
Quarter: 2012Q1

REPORT INFORMATION
  Report Type: 
  Country: None (occurrence: None)
  Receive Date: 20120127
  Receipt Date: 20120124
  Transmission Date: 20120608
  Serious: Yes (Other)
  Sender: FDA-Public Use
  Company Number: US-PFIZER INC-2011304258

PATIENT
  Sex: Female
  Weight: 66.667 kg

DRUGS (5)
  1. PAXIL [Concomitant]
     Indication: ANXIETY
     Dosage: CUTTING 10 MG TABLET INTO HALF, DAILY
     Route: 048
  2. CHANTIX [Suspect]
     Indication: SMOKING CESSATION THERAPY
     Dosage: 0.5 MG, DAILY
     Route: 048
     Dates: start: 20111101, end: 20110101
  3. CHANTIX [Suspect]
     Dosage: 1 MG, 2X/DAY
     Route: 048
     Dates: start: 20110101
  4. HYDROCODONE [Concomitant]
     Dosage: UNK
  5. METFORMIN [Concomitant]
     Dosage: UNK

REACTIONS (3)
  - SWELLING FACE [None]
  - DIABETES MELLITUS [None]
  - STOMATITIS [None]
